FAERS Safety Report 10134760 (Version 2)
Quarter: 2015Q1

REPORT INFORMATION
  Report Type: Other
  Country: US (occurrence: US)
  Receive Date: 20140428
  Receipt Date: 20150224
  Transmission Date: 20150720
  Serious: Yes (Hospitalization, Other)
  Sender: FDA-Public Use
  Company Number: US-GSKPPD-2014GSK036082

PATIENT
  Age: 57 Year
  Sex: Female

DRUGS (6)
  1. CLONIDINE. [Concomitant]
     Active Substance: CLONIDINE
     Route: 048
     Dates: start: 20050401
  2. ASPIRIN. [Concomitant]
     Active Substance: ASPIRIN
     Route: 048
  3. ENOXAPARIN SODIUM. [Concomitant]
     Active Substance: ENOXAPARIN SODIUM
     Route: 058
     Dates: start: 20050401, end: 20050401
  4. AVANDIA [Suspect]
     Active Substance: ROSIGLITAZONE MALEATE
     Indication: DIABETES MELLITUS
     Dosage: AVANDIA WAS NOT LISTED AMONG THE PATIENTS RECORDS REVIEWED
     Route: 048
  5. DIOVAN [Concomitant]
     Active Substance: VALSARTAN
     Route: 048
  6. METOPROLOL [Concomitant]
     Active Substance: METOPROLOL
     Dosage: INCREASED TO CURRENT DOSE DATED 1-APR-2005
     Route: 048

REACTIONS (2)
  - Atrial fibrillation [Recovered/Resolved]
  - Myocardial infarction [Unknown]

NARRATIVE: CASE EVENT DATE: 20050401
